FAERS Safety Report 24681533 (Version 1)
Quarter: 2024Q4

REPORT INFORMATION
  Report Type: Spontaneous
  Country: US (occurrence: US)
  Receive Date: 20241130
  Receipt Date: 20241130
  Transmission Date: 20250115
  Serious: No
  Sender: ABBVIE
  Company Number: US-ABBVIE-6022759

PATIENT
  Age: 62 Year
  Sex: Female
  Weight: 63.503 kg

DRUGS (1)
  1. LATISSE [Suspect]
     Active Substance: BIMATOPROST
     Indication: Growth of eyelashes
     Dosage: ONE PER EYE AS DIRECTED, FORM STRENGTH: 0.03 MILLIGRAM/MILLILITERS
     Route: 061
     Dates: start: 2019, end: 20241124

REACTIONS (4)
  - Eyelid disorder [Not Recovered/Not Resolved]
  - Eyelid irritation [Not Recovered/Not Resolved]
  - Erythema of eyelid [Not Recovered/Not Resolved]
  - Ocular hyperaemia [Not Recovered/Not Resolved]

NARRATIVE: CASE EVENT DATE: 20241101
